FAERS Safety Report 15987103 (Version 2)
Quarter: 2019Q1

REPORT INFORMATION
  Report Type: Spontaneous
  Country: JP (occurrence: JP)
  Receive Date: 20190220
  Receipt Date: 20190226
  Transmission Date: 20190418
  Serious: Yes (Hospitalization)
  Sender: FDA-Public Use
  Company Number: JP-PFIZER INC-2019067389

PATIENT
  Age: 77 Year
  Sex: Male
  Weight: 38 kg

DRUGS (3)
  1. NICOTINELL [Suspect]
     Active Substance: NICOTINE
     Dosage: 1 DF, 1X/DAY
     Route: 062
     Dates: start: 201802
  2. CHAMPIX 0.5MG [Suspect]
     Active Substance: VARENICLINE TARTRATE
     Dosage: 1 MG, 2X/DAY
     Route: 048
     Dates: start: 201801
  3. CHAMPIX 0.5MG [Suspect]
     Active Substance: VARENICLINE TARTRATE
     Indication: SMOKING CESSATION THERAPY
     Dosage: 0.5 MG, 2X/DAY
     Route: 048
     Dates: start: 201801, end: 201801

REACTIONS (6)
  - Pneumonia [Unknown]
  - Insomnia [Unknown]
  - Decreased appetite [Unknown]
  - Eating disorder [Unknown]
  - Malaise [Unknown]
  - Cholestasis [Recovered/Resolved]

NARRATIVE: CASE EVENT DATE: 201804
